FAERS Safety Report 4711363-1 (Version None)
Quarter: 2005Q3

REPORT INFORMATION
  Report Type: 
  Country: None (occurrence: None)
  Receive Date: 20050711
  Receipt Date: 20050622
  Transmission Date: 20060218
  Serious: Yes (Hospitalization)
  Sender: FDA-Public Use
  Company Number: IMP_0863_2005

PATIENT
  Age: 61 Year
  Sex: Female
  Weight: 83.2 kg

DRUGS (8)
  1. OXYCODONE HCL [Suspect]
     Indication: PAIN
     Dosage: DF PO
     Route: 048
  2. LIPOSOME ENTRAPPED PACLITAXEL EASY TO USE (LEP-ETU) [Suspect]
     Indication: NEOPLASM
     Dosage: DF ONCE IV
     Route: 042
     Dates: start: 20050314
  3. OXYCONTIN [Concomitant]
  4. FERROUS SULFATE TAB [Concomitant]
  5. SENOKOT [Concomitant]
  6. COLACE [Concomitant]
  7. MILK OF MAGNESIA [Concomitant]
  8. LACTULOSE [Concomitant]

REACTIONS (3)
  - BACTERAEMIA [None]
  - CONSTIPATION [None]
  - PELVIC ABSCESS [None]
